FAERS Safety Report 17113769 (Version 6)
Quarter: 2020Q1

REPORT INFORMATION
  Report Type: Spontaneous
  Country: CA (occurrence: CA)
  Receive Date: 20191205
  Receipt Date: 20200324
  Transmission Date: 20200409
  Serious: Yes (Other)
  Sender: FDA-Public Use
  Company Number: CA-CELLTRION INC.-2018CA024353

PATIENT

DRUGS (19)
  1. INFLECTRA [Suspect]
     Active Substance: INFLIXIMAB-DYYB
     Dosage: 10 MG/KG WEEK 6 THEN, EVERY 8 WEEKS)
     Route: 042
     Dates: start: 20181127, end: 20190514
  2. INFLECTRA [Suspect]
     Active Substance: INFLIXIMAB-DYYB
     Dosage: 10 MG/KG (EVERY 0, 2, 6 WEEKS,THEN EVERY 8 WEEKS)
     Route: 042
     Dates: start: 20190122
  3. INFLECTRA [Suspect]
     Active Substance: INFLIXIMAB-DYYB
     Dosage: 10 MG/KG (EVERY 0, 2, 6 WEEKS,THEN EVERY 8 WEEKS)
     Route: 042
     Dates: start: 20190514
  4. INFLECTRA [Suspect]
     Active Substance: INFLIXIMAB-DYYB
     Dosage: 10 MG/KG EVERY 6 WEEKS
     Route: 042
     Dates: start: 20200203
  5. INFLECTRA [Suspect]
     Active Substance: INFLIXIMAB-DYYB
     Indication: CROHN^S DISEASE
     Dosage: 5 MG/KG (EVERY 0, 2, 6 WEEKS,THEN EVERY 8 WEEKS)
     Route: 042
     Dates: start: 20181016
  6. INFLECTRA [Suspect]
     Active Substance: INFLIXIMAB-DYYB
     Dosage: 5 MG/KG (EVERY 0, 2, 6 WEEKS,THEN EVERY 8 WEEKS)
     Route: 042
     Dates: start: 20181030
  7. INFLECTRA [Suspect]
     Active Substance: INFLIXIMAB-DYYB
     Dosage: 10 MG/KG, EVERY 6 WEEKS
     Route: 042
     Dates: start: 20190705
  8. INFLECTRA [Suspect]
     Active Substance: INFLIXIMAB-DYYB
     Dosage: 10 MG/KG (EVERY 0, 2, 6 WEEKS,THEN EVERY 8 WEEKS)
     Route: 042
     Dates: start: 20190709
  9. INFLECTRA [Suspect]
     Active Substance: INFLIXIMAB-DYYB
     Dosage: 10 MG/KG, EVERY 6 WEEKS
     Route: 042
     Dates: start: 20191111
  10. PREDNISONE. [Concomitant]
     Active Substance: PREDNISONE
     Dosage: UNK
     Route: 065
     Dates: start: 201808
  11. INFLECTRA [Suspect]
     Active Substance: INFLIXIMAB-DYYB
     Dosage: 5 MG/KG (EVERY 0, 2, 6 WEEKS,THEN EVERY 8 WEEKS)
     Route: 042
     Dates: start: 20181016
  12. INFLECTRA [Suspect]
     Active Substance: INFLIXIMAB-DYYB
     Dosage: UNK
     Dates: start: 20190930
  13. INFLECTRA [Suspect]
     Active Substance: INFLIXIMAB-DYYB
     Dosage: 10 MG/KG (EVERY 0, 2, 6 WEEKS,THEN EVERY 8 WEEKS)
     Route: 042
     Dates: start: 20190319
  14. INFLECTRA [Suspect]
     Active Substance: INFLIXIMAB-DYYB
     Dosage: 10 MG/KG (EVERY 0, 2, 6 WEEKS,THEN EVERY 8 WEEKS)
     Route: 042
     Dates: start: 20190318
  15. METHOTREXATE. [Concomitant]
     Active Substance: METHOTREXATE
     Dosage: 25 MG, WEEKLY
     Route: 065
     Dates: start: 201807
  16. INFLECTRA [Suspect]
     Active Substance: INFLIXIMAB-DYYB
     Dosage: 10 MG/KG (EVERY 0, 2, 6 WEEKS,THEN EVERY 8 WEEKS)
     Route: 042
     Dates: start: 20181127
  17. INFLECTRA [Suspect]
     Active Substance: INFLIXIMAB-DYYB
     Dosage: 5 MG/KG (EVERY 0, 2, 6 WEEKS,THEN EVERY 8 WEEKS)
     Route: 042
     Dates: start: 20181016
  18. INFLECTRA [Suspect]
     Active Substance: INFLIXIMAB-DYYB
     Dosage: 10 MG/KG (EVERY 0, 2, 6 WEEKS,THEN EVERY 8 WEEKS)
     Route: 042
     Dates: start: 20190821
  19. INFLECTRA [Suspect]
     Active Substance: INFLIXIMAB-DYYB
     Dosage: 10  MG/KG EVERY 6 WEEKS
     Route: 042
     Dates: start: 20200316

REACTIONS (8)
  - Drug ineffective [Recovering/Resolving]
  - Off label use [Not Recovered/Not Resolved]
  - Intentional product use issue [Unknown]
  - Lipoma [Unknown]
  - Condition aggravated [Unknown]
  - Blood pressure fluctuation [Not Recovered/Not Resolved]
  - Faecal calprotectin increased [Unknown]
  - Inappropriate schedule of product administration [Not Recovered/Not Resolved]

NARRATIVE: CASE EVENT DATE: 20190122
